FAERS Safety Report 12473820 (Version 2)
Quarter: 2016Q2

REPORT INFORMATION
  Report Type: Report from Study
  Country: US (occurrence: US)
  Receive Date: 20160616
  Receipt Date: 20160627
  Transmission Date: 20160815
  Serious: Yes (Other)
  Sender: FDA-Public Use
  Company Number: US-SEATTLE GENETICS-2016SGN00947

PATIENT

DRUGS (31)
  1. ACETAMINOPHEN. [Concomitant]
     Active Substance: ACETAMINOPHEN
  2. DOCUSATE SODIUM. [Concomitant]
     Active Substance: DOCUSATE SODIUM
  3. ONDANSETRON [Concomitant]
     Active Substance: ONDANSETRON
  4. PANTOPRAZOLE [Concomitant]
     Active Substance: PANTOPRAZOLE SODIUM
  5. SODIUM BICARBONATE. [Concomitant]
     Active Substance: SODIUM BICARBONATE
  6. CHOLECALCIFEROL [Concomitant]
     Active Substance: CHOLECALCIFEROL
  7. EPINEPHRINE. [Concomitant]
     Active Substance: EPINEPHRINE
  8. BRENTUXIMAB VEDOTIN [Suspect]
     Active Substance: BRENTUXIMAB VEDOTIN
     Indication: ACUTE MYELOID LEUKAEMIA
     Dosage: 1.8 MG/KG, SINGLE
     Route: 042
     Dates: start: 20160525, end: 20160525
  9. CYTARABINE. [Suspect]
     Active Substance: CYTARABINE
     Indication: ACUTE MYELOID LEUKAEMIA
     Dosage: 1000 UNK, UNK
     Route: 042
     Dates: start: 20160527, end: 20160531
  10. BUPROPION. [Concomitant]
     Active Substance: BUPROPION
  11. METOPROLOL TARTRATE. [Concomitant]
     Active Substance: METOPROLOL TARTRATE
  12. HYDROCORTISONE SODIUM SUCCINATE [Concomitant]
     Active Substance: HYDROCORTISONE SODIUM SUCCINATE
  13. POSACONAZOLE [Concomitant]
     Active Substance: POSACONAZOLE
  14. OTHER THERAPEUTIC PRODUCTS [Concomitant]
     Active Substance: UNSPECIFIED INGREDIENT
  15. PROCHLORPERAZINE. [Concomitant]
     Active Substance: PROCHLORPERAZINE
  16. MEROPENEM. [Concomitant]
     Active Substance: MEROPENEM
  17. AMPHOTERICIN [Concomitant]
     Active Substance: AMPHOTERICIN B
  18. ACYCLOVIR                          /00587301/ [Concomitant]
     Active Substance: ACYCLOVIR
  19. POLYETHYLENE GLYCOL [Concomitant]
     Active Substance: POLYETHYLENE GLYCOLS
  20. DIPHENHYDRAMINE. [Concomitant]
     Active Substance: DIPHENHYDRAMINE
  21. POTASSIUM CHLORIDE. [Concomitant]
     Active Substance: POTASSIUM CHLORIDE
  22. FAMOTIDINE. [Concomitant]
     Active Substance: FAMOTIDINE
  23. MITOXANTRONE [Suspect]
     Active Substance: MITOXANTRONE HYDROCHLORIDE
     Indication: ACUTE MYELOID LEUKAEMIA
     Dosage: 10 MG/M2, QD
     Route: 042
     Dates: start: 20160527, end: 20160531
  24. ETOPOSIDE. [Suspect]
     Active Substance: ETOPOSIDE
     Indication: ACUTE MYELOID LEUKAEMIA
     Dosage: 100 UNK, UNK
     Route: 042
     Dates: start: 20160527, end: 20160531
  25. MAGNESIUM SULFATE. [Concomitant]
     Active Substance: MAGNESIUM SULFATE
  26. LEVOFLOXACIN. [Concomitant]
     Active Substance: LEVOFLOXACIN
  27. OXYCODONE [Concomitant]
     Active Substance: OXYCODONE
  28. TRAZODONE [Concomitant]
     Active Substance: TRAZODONE HYDROCHLORIDE
  29. DEXAMETHASONE. [Concomitant]
     Active Substance: DEXAMETHASONE
  30. INSULIN ASPART [Concomitant]
     Active Substance: INSULIN ASPART
  31. DAPTOMYCIN. [Concomitant]
     Active Substance: DAPTOMYCIN

REACTIONS (2)
  - Enteritis infectious [Not Recovered/Not Resolved]
  - Infectious colitis [Not Recovered/Not Resolved]

NARRATIVE: CASE EVENT DATE: 20160605
